FAERS Safety Report 18620652 (Version 2)
Quarter: 2020Q4

REPORT INFORMATION
  Report Type: Report from Study
  Country: US (occurrence: US)
  Receive Date: 20201216
  Receipt Date: 20201223
  Transmission Date: 20210114
  Serious: Yes (Hospitalization)
  Sender: FDA-Public Use
  Company Number: US-ROCHE-2731208

PATIENT
  Age: 31 Year
  Sex: Female
  Weight: 83.5 kg

DRUGS (16)
  1. DEXAMETHASONE. [Suspect]
     Active Substance: DEXAMETHASONE
     Indication: METASTASES TO CENTRAL NERVOUS SYSTEM
     Route: 065
     Dates: start: 2020
  2. BUTALBITAL [Concomitant]
     Active Substance: BUTALBITAL
  3. VISTARIL [Concomitant]
     Active Substance: HYDROXYZINE PAMOATE
     Dates: start: 2018
  4. TRAMADOL. [Concomitant]
     Active Substance: TRAMADOL
     Dates: start: 20200819
  5. DULOXETINE. [Concomitant]
     Active Substance: DULOXETINE
     Dates: start: 20200819
  6. DILAUDID [Concomitant]
     Active Substance: HYDROMORPHONE HYDROCHLORIDE
     Dates: start: 20201124, end: 20201124
  7. METHYLPREDNISOLONE. [Suspect]
     Active Substance: METHYLPREDNISOLONE
     Indication: WHEEZING
     Route: 065
     Dates: start: 20201113
  8. ALBUTEROL. [Concomitant]
     Active Substance: ALBUTEROL
  9. MEDROL [Concomitant]
     Active Substance: METHYLPREDNISOLONE
     Dates: start: 20201113, end: 20201118
  10. ZYPREXA [Concomitant]
     Active Substance: OLANZAPINE
  11. LORAZEPAM. [Concomitant]
     Active Substance: LORAZEPAM
  12. BLINDED TUCATINIB [Suspect]
     Active Substance: TUCATINIB
     Indication: HER2 POSITIVE BREAST CANCER
     Route: 048
     Dates: start: 20200728, end: 20201201
  13. KEPPRA [Concomitant]
     Active Substance: LEVETIRACETAM
  14. FUROSEMIDE. [Concomitant]
     Active Substance: FUROSEMIDE
     Dates: start: 20200819
  15. TRASTUZUMAB EMTANSINE [Suspect]
     Active Substance: ADO-TRASTUZUMAB EMTANSINE
     Indication: HER2 POSITIVE BREAST CANCER
     Route: 042
     Dates: start: 20200728, end: 20201111
  16. IBUPROFEN. [Concomitant]
     Active Substance: IBUPROFEN

REACTIONS (1)
  - Pneumonia fungal [Not Recovered/Not Resolved]

NARRATIVE: CASE EVENT DATE: 20201202
